FAERS Safety Report 7909150-6 (Version None)
Quarter: 2011Q4

REPORT INFORMATION
  Report Type: 
  Country: None (occurrence: None)
  Receive Date: 20111111
  Receipt Date: 20110119
  Transmission Date: 20120403
  Serious: No
  Sender: FDA-Public Use
  Company Number: US-GLAXOSMITHKLINE-A0908098A

PATIENT
  Age: 80 Year
  Sex: Male

DRUGS (2)
  1. CONCURRENT MEDICATIONS [Concomitant]
  2. CARVEDILOL [Suspect]
     Indication: PRODUCT USED FOR UNKNOWN INDICATION
     Dosage: 12.5MG UNKNOWN
     Route: 048

REACTIONS (1)
  - ADVERSE DRUG REACTION [None]
